FAERS Safety Report 20065071 (Version 1)
Quarter: 2021Q4

REPORT INFORMATION
  Report Type: Spontaneous
  Country: GT (occurrence: GT)
  Receive Date: 20211113
  Receipt Date: 20211113
  Transmission Date: 20220303
  Serious: Yes (Death)
  Sender: FDA-Public Use
  Company Number: GT-NOVARTISPH-NVSC2021GT259673

PATIENT
  Sex: Male

DRUGS (1)
  1. GLIVEC [Suspect]
     Active Substance: IMATINIB MESYLATE
     Indication: Chronic myeloid leukaemia
     Dosage: 600 MG (1X400MG + 2 X100MG TABLETS)
     Route: 065

REACTIONS (2)
  - Pneumonia [Fatal]
  - Asthenia [Fatal]
